FAERS Safety Report 6568272-5 (Version None)
Quarter: 2010Q1

REPORT INFORMATION
  Report Type: 
  Country: None (occurrence: None)
  Receive Date: 20100128
  Receipt Date: 20100121
  Transmission Date: 20100710
  Serious: Yes (Hospitalization)
  Sender: FDA-Public Use
  Company Number: 1000011397

PATIENT
  Sex: Female

DRUGS (3)
  1. SAVELLA [Suspect]
  2. CYMBALTA [Suspect]
  3. CHEMOTHERAPY (NOS) [Suspect]

REACTIONS (1)
  - JAUNDICE [None]
